FAERS Safety Report 11869135 (Version 4)
Quarter: 2016Q1

REPORT INFORMATION
  Report Type: Spontaneous
  Country: JP (occurrence: JP)
  Receive Date: 20151226
  Receipt Date: 20160206
  Transmission Date: 20160526
  Serious: Yes (Death, Other)
  Sender: FDA-Public Use
  Company Number: JP-AMGEN-JPNSP2015139047

PATIENT
  Age: 70 Year
  Sex: Male
  Weight: 48 kg

DRUGS (17)
  1. KIKLIN [Concomitant]
     Active Substance: BIXALOMER
     Dosage: 2250 MG, UNK
     Route: 048
  2. KALISERUM NA [Concomitant]
     Dosage: 3 G, UNK
     Route: 048
  3. FOSRENOL [Concomitant]
     Active Substance: LANTHANUM CARBONATE
     Dosage: 750 MG, UNK
     Route: 048
  4. KN NO.4 [Concomitant]
     Dosage: 500 ML, UNK
     Route: 065
  5. NESP [Suspect]
     Active Substance: DARBEPOETIN ALFA
     Indication: NEPHROGENIC ANAEMIA
     Dosage: 180 MUG, QWK
     Route: 041
     Dates: end: 20151216
  6. L CARTIN FF [Concomitant]
     Active Substance: LEVOCARNITINE
     Dosage: 100 MG, 3 TIMES/WK
     Route: 065
  7. MEROPENEM. [Concomitant]
     Active Substance: MEROPENEM
     Dosage: 1 G, UNK
     Route: 065
  8. VOGLIBOSE [Concomitant]
     Active Substance: VOGLIBOSE
     Dosage: 0.9 MG, UNK
     Route: 048
  9. REMITCH [Concomitant]
     Active Substance: NALFURAFINE HYDROCHLORIDE
     Dosage: 2.5 MUG, UNK
     Route: 048
  10. ADONA                              /00056903/ [Concomitant]
     Active Substance: CARBAZOCHROME SODIUM SULFONATE
     Dosage: 100 MG, UNK
     Route: 065
  11. BROTIZOLAM [Concomitant]
     Active Substance: BROTIZOLAM
     Dosage: 0.25 MG, UNK
     Route: 048
  12. URSODEOXYCHOLIC ACID [Concomitant]
     Active Substance: URSODIOL
     Dosage: 600 MG, UNK
     Route: 048
  13. URSODEOXYCHOLIC ACID [Concomitant]
     Active Substance: URSODIOL
     Dosage: 600 MG, UNK
     Route: 048
  14. FOSRENOL [Concomitant]
     Active Substance: LANTHANUM CARBONATE
     Dosage: 750 MG, UNK
     Route: 048
  15. REMITCH [Concomitant]
     Active Substance: NALFURAFINE HYDROCHLORIDE
     Dosage: 2.5 MUG, UNK
  16. KALISERUM NA [Concomitant]
     Dosage: 3 G, UNK
     Route: 048
  17. CALTAN [Concomitant]
     Active Substance: CALCIUM CARBONATE
     Dosage: 3000 MG, UNK
     Route: 048

REACTIONS (7)
  - Tachycardia [Recovering/Resolving]
  - Haemoglobin decreased [Fatal]
  - Hepatic function abnormal [Recovering/Resolving]
  - Platelet count decreased [Fatal]
  - Hypotension [Recovering/Resolving]
  - Pyrexia [Fatal]
  - C-reactive protein increased [Fatal]

NARRATIVE: CASE EVENT DATE: 20151209
